FAERS Safety Report 6369291-4 (Version None)
Quarter: 2009Q3

REPORT INFORMATION
  Report Type: 
  Country: None (occurrence: None)
  Receive Date: 20090916
  Receipt Date: 20090908
  Transmission Date: 20100115
  Serious: Yes (Death, Hospitalization)
  Sender: FDA-Public Use
  Company Number: 2009SP024341

PATIENT
  Age: 42 Year
  Sex: Male

DRUGS (2)
  1. TEMODAL [Suspect]
     Indication: GLIOBLASTOMA MULTIFORME
     Dosage: 145 MG;QD; 130 MG;QD
     Dates: start: 20090810, end: 20090824
  2. TEMODAL [Suspect]
     Indication: GLIOBLASTOMA MULTIFORME
     Dosage: 145 MG;QD; 130 MG;QD
     Dates: start: 20090825, end: 20090901

REACTIONS (2)
  - BRAIN OEDEMA [None]
  - PLATELET COUNT DECREASED [None]
